FAERS Safety Report 22593603 (Version 3)
Quarter: 2023Q2

REPORT INFORMATION
  Report Type: Spontaneous
  Country: CN (occurrence: CN)
  Receive Date: 20230613
  Receipt Date: 20230620
  Transmission Date: 20230722
  Serious: Yes (Hospitalization)
  Sender: FDA-Public Use
  Company Number: CN-BoehringerIngelheim-2023-BI-242705

PATIENT
  Age: 48 Year
  Sex: Female

DRUGS (2)
  1. LINAGLIPTIN [Suspect]
     Active Substance: LINAGLIPTIN
     Indication: Diabetes mellitus
     Dosage: 1 DOSAGE FORM
     Route: 048
     Dates: start: 20230508, end: 20230608
  2. METFORMIN [Concomitant]
     Active Substance: METFORMIN HYDROCHLORIDE
     Indication: Diabetes mellitus

REACTIONS (12)
  - Anaphylactic reaction [Unknown]
  - Angioedema [Unknown]
  - Dermatitis exfoliative [Unknown]
  - Arthritis [Unknown]
  - Pemphigoid [Unknown]
  - Rash [Unknown]
  - Mouth ulceration [Not Recovered/Not Resolved]
  - Stomatitis [Unknown]
  - Hypersensitivity [Unknown]
  - Pruritus [Recovering/Resolving]
  - Cough [Unknown]
  - Diarrhoea [Unknown]
